FAERS Safety Report 12409483 (Version 1)
Quarter: 2016Q2

REPORT INFORMATION
  Report Type: Spontaneous
  Country: BR (occurrence: BR)
  Receive Date: 20160526
  Receipt Date: 20160526
  Transmission Date: 20160815
  Serious: Yes (Other)
  Sender: FDA-Public Use
  Company Number: BR-ABBVIE-16P-020-1637992-00

PATIENT
  Sex: Female
  Weight: 85 kg

DRUGS (7)
  1. DEPAKENE [Suspect]
     Active Substance: VALPROIC ACID
     Indication: DEPRESSION
     Dosage: (2 CAPSULE IN MORNING AND NIGHT)
     Route: 048
  2. GLIBENCLAMIDE [Concomitant]
     Active Substance: GLYBURIDE
     Indication: DIABETES MELLITUS
     Route: 048
  3. AAS [Concomitant]
     Active Substance: ASPIRIN
     Indication: TACHYCARDIA
     Dosage: DAILY DOSE: 200MG (2 TABLET, AT 12 PM.)
     Route: 048
  4. DIAZEPAM. [Concomitant]
     Active Substance: DIAZEPAM
     Indication: SLEEP DISORDER THERAPY
     Dosage: DAILY DOSE: 20MG (2 TABLET, AT NIGHT)
     Route: 048
  5. METFORMIN [Concomitant]
     Active Substance: METFORMIN HYDROCHLORIDE
     Indication: DIABETES MELLITUS
     Route: 048
  6. ATENOLOL. [Concomitant]
     Active Substance: ATENOLOL
     Indication: HYPERTENSION
     Route: 048
  7. SIMVASTATIN. [Concomitant]
     Active Substance: SIMVASTATIN
     Indication: BLOOD CHOLESTEROL INCREASED
     Dosage: DAILY DOSE: 40MG (2 TABLET, AT LUNCH)
     Route: 048

REACTIONS (6)
  - Thyroid mass [Unknown]
  - Product use issue [Unknown]
  - Parkinson^s disease [Unknown]
  - Premature ageing [Unknown]
  - Pain [Unknown]
  - Off label use [Unknown]
